FAERS Safety Report 8235148-7 (Version None)
Quarter: 2012Q1

REPORT INFORMATION
  Report Type: 
  Country: None (occurrence: None)
  Receive Date: 20120322
  Receipt Date: 20120313
  Transmission Date: 20120608
  Serious: Yes (Other)
  Sender: FDA-Public Use
  Company Number: ALK_02193_2011

PATIENT
  Sex: Male
  Weight: 101.6057 kg

DRUGS (18)
  1. ALBUTEROL [Concomitant]
  2. ZOCOR [Concomitant]
  3. SYNTHROID [Concomitant]
  4. OMEPRAZOLE [Concomitant]
  5. VIVITROL [Suspect]
     Indication: ALCOHOLISM
     Dosage: (INTRAMUSCULAR)
     Route: 030
     Dates: start: 20110218
  6. VOLTAREN [Concomitant]
  7. GABAPENTIN [Concomitant]
  8. METFORMIN HCL [Concomitant]
  9. COREG [Concomitant]
  10. LISINOPRIL [Concomitant]
  11. ZYRTEC [Concomitant]
  12. LEVOTHROID [Concomitant]
  13. FLUOXETINE [Concomitant]
  14. ASPIRIN [Concomitant]
  15. TRAZODONE HCL [Concomitant]
  16. HYDROXYZINE PAMOATE [Concomitant]
  17. ADVAIR DISKUS 100/50 [Concomitant]
  18. DIVALPROEX SODIUM [Concomitant]

REACTIONS (5)
  - INJECTION SITE REACTION [None]
  - INJECTION SITE PAIN [None]
  - STAPHYLOCOCCAL INFECTION [None]
  - INJECTION SITE MASS [None]
  - SUBCUTANEOUS ABSCESS [None]
